FAERS Safety Report 7340771-8 (Version None)
Quarter: 2011Q1

REPORT INFORMATION
  Report Type: 
  Country: None (occurrence: None)
  Receive Date: 20110309
  Receipt Date: 20110301
  Transmission Date: 20110831
  Serious: Yes (Other)
  Sender: FDA-Public Use
  Company Number: US-ROCHE-763202

PATIENT
  Sex: Female
  Weight: 45.4 kg

DRUGS (1)
  1. BONIVA [Suspect]
     Indication: OSTEOPOROSIS POSTMENOPAUSAL
     Route: 042
     Dates: start: 20080101

REACTIONS (4)
  - PARATHYROID DISORDER [None]
  - BACK PAIN [None]
  - BLOOD GLUCOSE INCREASED [None]
  - ARTHRALGIA [None]
